FAERS Safety Report 6208606-4 (Version None)
Quarter: 2009Q2

REPORT INFORMATION
  Report Type: 
  Country: None (occurrence: None)
  Receive Date: 20090529
  Receipt Date: 20090519
  Transmission Date: 20091009
  Serious: Yes (Other)
  Sender: FDA-Public Use
  Company Number: ES-JNJFOC-20090505542

PATIENT
  Age: 53 Year
  Sex: Female

DRUGS (2)
  1. INVEGA [Suspect]
     Route: 048
  2. INVEGA [Suspect]
     Indication: PSYCHOTIC DISORDER
     Route: 048

REACTIONS (2)
  - ASTERIXIS [None]
  - CEREBELLAR SYNDROME [None]
